FAERS Safety Report 23972974 (Version 1)
Quarter: 2024Q2

REPORT INFORMATION
  Report Type: Spontaneous
  Country: GB (occurrence: GB)
  Receive Date: 20240613
  Receipt Date: 20240613
  Transmission Date: 20240716
  Serious: Yes (Hospitalization, Other)
  Sender: FDA-Public Use
  Company Number: GB-009507513-2406GBR001709

PATIENT
  Age: 60 Year
  Sex: Male
  Weight: 67.3 kg

DRUGS (17)
  1. PEMBROLIZUMAB [Suspect]
     Active Substance: PEMBROLIZUMAB
     Indication: Squamous cell carcinoma of head and neck
     Dosage: 200 MILLIGRAM, Q3W
     Route: 042
     Dates: start: 20240321, end: 20240321
  2. PEMBROLIZUMAB [Suspect]
     Active Substance: PEMBROLIZUMAB
     Dosage: 200 MILLIGRAM, Q3W
     Route: 042
     Dates: start: 20240411, end: 20240411
  3. NUTRISON STERILE WATER [Concomitant]
     Dosage: 120 MILLILITER
  4. PREDNISOLONE [Concomitant]
     Active Substance: PREDNISOLONE
     Indication: Rheumatoid arthritis
     Dosage: 10 MG, EVERY 1 DAYS
     Dates: start: 2019, end: 20240322
  5. PREGABALIN [Concomitant]
     Active Substance: PREGABALIN
     Indication: Rheumatoid arthritis
     Dosage: 300 MG, 2/DAYS
     Dates: start: 202402
  6. ACETAMINOPHEN [Concomitant]
     Active Substance: ACETAMINOPHEN
     Indication: Rheumatoid arthritis
     Dosage: 1000 MG, 4/DAYS
     Dates: start: 202402
  7. DOXYCYCLINE [Concomitant]
     Active Substance: DOXYCYCLINE\DOXYCYCLINE HYCLATE
     Indication: Rheumatoid arthritis
     Dosage: 100 MG, EVERY 1 DAYS
     Dates: start: 2019, end: 20240320
  8. LANSOPRAZOLE [Concomitant]
     Active Substance: LANSOPRAZOLE
     Indication: Prophylaxis
     Dosage: 30 MG, EVERY 1 DAYS
     Dates: start: 2016
  9. OXYCODONE HYDROCHLORIDE [Concomitant]
     Active Substance: OXYCODONE HYDROCHLORIDE
     Indication: Osteoarthritis
     Dosage: 35 MG OVER 24 HOURS VIA SYRINGE DRIVER
     Dates: start: 202402, end: 20240418
  10. OXYCODONE HYDROCHLORIDE [Concomitant]
     Active Substance: OXYCODONE HYDROCHLORIDE
     Dosage: 10 MG PRN, 4/DAYS
     Dates: start: 202402
  11. CYCLIZINE [Concomitant]
     Active Substance: CYCLIZINE
     Indication: Osteoarthritis
     Dosage: 150 MG OVER 24 HOURS VIA SYRINGE DRIVER
     Dates: start: 202402, end: 20240418
  12. HALOPERIDOL [Concomitant]
     Active Substance: HALOPERIDOL
     Indication: Osteoarthritis
     Dosage: 2 MG OVER 24 HOURS VIA SYRINGE DRIVER
     Dates: start: 202402, end: 20240418
  13. DEXAMETHASONE [Concomitant]
     Active Substance: DEXAMETHASONE
     Indication: Hyperkeratosis
     Dosage: 1 MG OVER 24 HOURS VIA SYRINGE DRIVER
     Dates: start: 20240312, end: 20240313
  14. FLUCONAZOLE [Concomitant]
     Active Substance: FLUCONAZOLE
     Indication: Candida infection
     Dosage: 50 MG, EVERY 1 DAYS
     Dates: start: 20240319, end: 20240324
  15. CALOGEN [FATS NOS] [Concomitant]
     Indication: Dysphagia
     Dosage: 20 ML, 4/DAYS
     Dates: start: 202310
  16. FOLIC ACID [Concomitant]
     Active Substance: FOLIC ACID
     Indication: Folate deficiency
     Dosage: 5 MG, EVERY 1 DAYS
     Dates: start: 20220820
  17. IBUPROFEN [Concomitant]
     Active Substance: IBUPROFEN
     Indication: Rheumatoid arthritis
     Dosage: 400 MG, 3/DAYS
     Dates: start: 202402

REACTIONS (4)
  - Aspartate aminotransferase increased [Recovering/Resolving]
  - Fatigue [Recovering/Resolving]
  - Alanine aminotransferase increased [Recovering/Resolving]
  - Rheumatoid arthritis [Recovered/Resolved]

NARRATIVE: CASE EVENT DATE: 20240321
